FAERS Safety Report 20191875 (Version 1)
Quarter: 2021Q4

REPORT INFORMATION
  Report Type: Report from Study
  Country: FR (occurrence: FR)
  Receive Date: 20211216
  Receipt Date: 20211216
  Transmission Date: 20220303
  Serious: Yes (Other)
  Sender: FDA-Public Use
  Company Number: FR-TAKEDA-FR201945901

PATIENT
  Age: 72 Year
  Sex: Female

DRUGS (16)
  1. TEDUGLUTIDE [Suspect]
     Active Substance: TEDUGLUTIDE
     Indication: Short-bowel syndrome
     Dosage: 3.8 MILLIGRAM, QD
     Route: 065
     Dates: start: 20170325, end: 20170613
  2. TEDUGLUTIDE [Suspect]
     Active Substance: TEDUGLUTIDE
     Indication: Short-bowel syndrome
     Dosage: 3.8 MILLIGRAM, QD
     Route: 065
     Dates: start: 20170325, end: 20170613
  3. TEDUGLUTIDE [Suspect]
     Active Substance: TEDUGLUTIDE
     Indication: Short-bowel syndrome
     Dosage: 3.8 MILLIGRAM, QD
     Route: 065
     Dates: start: 20170325, end: 20170613
  4. TEDUGLUTIDE [Suspect]
     Active Substance: TEDUGLUTIDE
     Indication: Short-bowel syndrome
     Dosage: 3.8 MILLIGRAM, QD
     Route: 065
     Dates: start: 20170325, end: 20170613
  5. TEDUGLUTIDE [Suspect]
     Active Substance: TEDUGLUTIDE
     Dosage: 3.6 MILLIGRAM, QD
     Route: 065
     Dates: start: 20170614, end: 201803
  6. TEDUGLUTIDE [Suspect]
     Active Substance: TEDUGLUTIDE
     Dosage: 3.6 MILLIGRAM, QD
     Route: 065
     Dates: start: 20170614, end: 201803
  7. TEDUGLUTIDE [Suspect]
     Active Substance: TEDUGLUTIDE
     Dosage: 3.6 MILLIGRAM, QD
     Route: 065
     Dates: start: 20170614, end: 201803
  8. TEDUGLUTIDE [Suspect]
     Active Substance: TEDUGLUTIDE
     Dosage: 3.6 MILLIGRAM, QD
     Route: 065
     Dates: start: 20170614, end: 201803
  9. TEDUGLUTIDE [Suspect]
     Active Substance: TEDUGLUTIDE
     Dosage: 3.4 MILLIGRAM, QD
     Route: 065
     Dates: start: 201803
  10. TEDUGLUTIDE [Suspect]
     Active Substance: TEDUGLUTIDE
     Dosage: 3.4 MILLIGRAM, QD
     Route: 065
     Dates: start: 201803
  11. TEDUGLUTIDE [Suspect]
     Active Substance: TEDUGLUTIDE
     Dosage: 3.4 MILLIGRAM, QD
     Route: 065
     Dates: start: 201803
  12. TEDUGLUTIDE [Suspect]
     Active Substance: TEDUGLUTIDE
     Dosage: 3.4 MILLIGRAM, QD
     Route: 065
     Dates: start: 201803
  13. STELARA [Concomitant]
     Active Substance: USTEKINUMAB
     Indication: Crohn^s disease
     Dosage: 90 MILLIGRAM, Q3MONTHS
     Route: 058
  14. OFLOXACIN [Concomitant]
     Active Substance: OFLOXACIN
     Indication: Pyelonephritis
     Dosage: 1 DOSAGE FORM, QD
     Route: 048
     Dates: start: 20171205, end: 20171218
  15. CEFTRIAXONE [Concomitant]
     Active Substance: CEFTRIAXONE
     Indication: Pyelonephritis
     Dosage: 1 GRAM, QD
     Route: 042
     Dates: start: 20171204, end: 20171204
  16. CEFTRIAXONE [Concomitant]
     Active Substance: CEFTRIAXONE
     Indication: Pyelonephritis acute
     Dosage: 1 GRAM, QD
     Route: 042
     Dates: start: 20170813, end: 20170819

REACTIONS (2)
  - Acute kidney injury [Recovered/Resolved]
  - Haematocrit increased [Recovered/Resolved]

NARRATIVE: CASE EVENT DATE: 20190419
